FAERS Safety Report 18092691 (Version 2)
Quarter: 2020Q3

REPORT INFORMATION
  Report Type: Spontaneous
  Country: US (occurrence: US)
  Receive Date: 20200730
  Receipt Date: 20200908
  Transmission Date: 20201103
  Serious: No
  Sender: FDA-Public Use
  Company Number: US-LEO PHARMA-330719

PATIENT
  Sex: Female

DRUGS (1)
  1. SKINOREN CUTANEOUS FOAM [Suspect]
     Active Substance: AZELAIC ACID
     Indication: ROSACEA
     Route: 061

REACTIONS (6)
  - Prescription drug used without a prescription [Unknown]
  - Expired product administered [Unknown]
  - Application site pain [Unknown]
  - Erythema [Recovered/Resolved]
  - Inappropriate schedule of product administration [Unknown]
  - Dry skin [Recovered/Resolved]
